FAERS Safety Report 21227562 (Version 1)
Quarter: 2022Q3

REPORT INFORMATION
  Report Type: Report from Study
  Country: US (occurrence: US)
  Receive Date: 20220818
  Receipt Date: 20220818
  Transmission Date: 20221027
  Serious: Yes (Hospitalization)
  Sender: FDA-Public Use
  Company Number: US-Accord-273658

PATIENT
  Sex: Male

DRUGS (1)
  1. CLOZAPINE [Suspect]
     Active Substance: CLOZAPINE
     Indication: Schizophrenia
     Dosage: 500 OR 600 MG DAILY
     Route: 048

REACTIONS (3)
  - Psychotic disorder [Unknown]
  - COVID-19 [Unknown]
  - Treatment noncompliance [Unknown]
